FAERS Safety Report 25847046 (Version 2)
Quarter: 2025Q4

REPORT INFORMATION
  Report Type: Spontaneous
  Country: EU (occurrence: EU)
  Receive Date: 20250925
  Receipt Date: 20251016
  Transmission Date: 20260117
  Serious: Yes (Hospitalization, Other)
  Sender: BAXTER
  Company Number: None

PATIENT
  Age: 63 Year
  Sex: Female
  Weight: 79 kg

DRUGS (4)
  1. DOXORUBICIN [Suspect]
     Active Substance: DOXORUBICIN
     Indication: Hodgkin^s disease
     Dosage: 45 MG, CYCLICAL (CYCLE 3 +14: 45 MILLIGRAMS (25 MG/M2) FIRST CYCLE: 04/29/2025
     Route: 042
     Dates: start: 20250429, end: 20250624
  2. BLEOMYCIN [Suspect]
     Active Substance: BLEOMYCIN SULFATE
     Indication: Hodgkin^s disease
     Dosage: 18 [IU], CYCLICAL (CYCLE 2 +15 18IU/TOTAL. FIRST CYCLE+1:  04/29/2025 (15,000 IU (PH EUR) = 15 U (US
     Route: 042
     Dates: start: 20250429, end: 20250527
  3. DACARBAZINE [Suspect]
     Active Substance: DACARBAZINE
     Indication: Hodgkin^s disease
     Dosage: 675 MG, CYCLICAL (CYCLE 3 +14: 675 MILLIGRAMS (375 MG/M2)  FIRST CYCLE: 04/29/2025)
     Route: 042
     Dates: start: 20250429, end: 20250624
  4. VINBLASTINE [Suspect]
     Active Substance: VINBLASTINE
     Indication: Hodgkin^s disease
     Dosage: 10.8 MG, CYCLICAL (CYCLE 3 +14: 10.8 MILLIGRAMS (6 MG/M2) FIRST CYCLE: 04/29/2025)
     Route: 042
     Dates: start: 20250429, end: 20250624

REACTIONS (1)
  - Interstitial lung disease [Recovering/Resolving]

NARRATIVE: CASE EVENT DATE: 20250619
